FAERS Safety Report 5400395-6 (Version None)
Quarter: 2007Q3

REPORT INFORMATION
  Report Type: 
  Country: None (occurrence: None)
  Receive Date: 20070730
  Receipt Date: 20070720
  Transmission Date: 20080115
  Serious: Yes (Hospitalization)
  Sender: FDA-Public Use
  Company Number: B0479114A

PATIENT
  Age: 56 Year
  Sex: Female
  Weight: 65 kg

DRUGS (6)
  1. LAPATINIB [Suspect]
     Dosage: 1000MG PER DAY
     Route: 048
     Dates: start: 20070707
  2. CAPECITABINE [Suspect]
     Dosage: 2500MG PER DAY
     Route: 048
     Dates: start: 20070707
  3. VISIPAQUE [Suspect]
     Route: 042
     Dates: start: 20070703
  4. IOXITALAMIC ACID [Suspect]
     Route: 048
     Dates: start: 20070703
  5. DIAMICRON [Concomitant]
     Indication: DIABETES MELLITUS
     Dosage: 80MG THREE TIMES PER DAY
     Route: 048
     Dates: start: 20001109, end: 20070708
  6. IMODIUM [Concomitant]
     Route: 048
     Dates: start: 20070615

REACTIONS (4)
  - DEHYDRATION [None]
  - DIARRHOEA [None]
  - GENERAL PHYSICAL HEALTH DETERIORATION [None]
  - HYPOKALAEMIA [None]
